FAERS Safety Report 5202748-8 (Version None)
Quarter: 2006Q4

REPORT INFORMATION
  Report Type: 
  Country: None (occurrence: None)
  Receive Date: 20061016
  Receipt Date: 20060828
  Transmission Date: 20070319
  Serious: No
  Sender: FDA-Public Use
  Company Number: 2006SP003142

PATIENT
  Age: 57 Year
  Sex: Female
  Weight: 49.8957 kg

DRUGS (5)
  1. LUNESTA [Suspect]
     Indication: INSOMNIA
     Dosage: 3 MG;1X;ORAL; 1.5 MG;1X;ORAL;2 MG;HS;ORAL
     Route: 048
     Dates: start: 20060818, end: 20060818
  2. LUNESTA [Suspect]
     Indication: INSOMNIA
     Dosage: 3 MG;1X;ORAL; 1.5 MG;1X;ORAL;2 MG;HS;ORAL
     Route: 048
     Dates: start: 20060819, end: 20060819
  3. LUNESTA [Suspect]
     Indication: INSOMNIA
     Dosage: 3 MG;1X;ORAL; 1.5 MG;1X;ORAL;2 MG;HS;ORAL
     Route: 048
     Dates: start: 20060819, end: 20060819
  4. LUNESTA [Suspect]
     Indication: INSOMNIA
     Dosage: 3 MG;1X;ORAL; 1.5 MG;1X;ORAL;2 MG;HS;ORAL
     Route: 048
     Dates: start: 20060821, end: 20060825
  5. VALIUM [Concomitant]

REACTIONS (4)
  - ASTHENIA [None]
  - DIZZINESS [None]
  - INSOMNIA [None]
  - SOMNOLENCE [None]
